FAERS Safety Report 9172779 (Version 1)
Quarter: 2012Q4

REPORT INFORMATION
  Report Type: 
  Country: US (occurrence: US)
  Receive Date: 20120911
  Receipt Date: 20120911
  Transmission Date: 20130627
  Serious: Yes (Other)
  Sender: FDA-Public Use
  Company Number: US-PFIZER INC-2012219153

PATIENT
  Age: 40 Year
  Sex: Female
  Weight: 99.8 kg

DRUGS (3)
  1. PRISTIQ [Suspect]
     Indication: DEPRESSION
     Dosage: 50 mg, daily
     Dates: start: 201103, end: 2011
  2. PRISTIQ [Suspect]
     Dosage: 100 mg, Daily
     Dates: start: 2011, end: 201207
  3. DIOVAN (VALSARTAN) [Concomitant]
     Indication: HYPERTENSION
     Dosage: UNK

REACTIONS (19)
  - Mental impairment [Unknown]
  - Weight increased [Unknown]
  - Weight decreased [Unknown]
  - Dizziness [Recovered/Resolved]
  - Disturbance in attention [Unknown]
  - Malaise [Unknown]
  - Feeling abnormal [Unknown]
  - Dysphemia [Unknown]
  - Head discomfort [Recovered/Resolved]
  - Nervousness [Unknown]
  - Hyperphagia [Unknown]
  - Emotional disorder [Unknown]
  - Abdominal pain upper [Unknown]
  - Diarrhoea [Unknown]
  - Hypersomnia [Unknown]
  - Depressed mood [Unknown]
  - Fatigue [Unknown]
  - Abnormal behaviour [Unknown]
  - Aggression [Unknown]
